FAERS Safety Report 24927162 (Version 1)
Quarter: 2025Q1

REPORT INFORMATION
  Report Type: Spontaneous
  Country: JP (occurrence: JP)
  Receive Date: 20250205
  Receipt Date: 20250205
  Transmission Date: 20250409
  Serious: Yes (Hospitalization)
  Sender: AMGEN
  Company Number: JP-KISSEI-TV20250077_P_1

PATIENT
  Age: 72 Year
  Sex: Female

DRUGS (2)
  1. TAVNEOS [Suspect]
     Active Substance: AVACOPAN
     Indication: Microscopic polyangiitis
     Dosage: 10 MG, BID
     Route: 048
     Dates: start: 20241125, end: 20250106
  2. PREDONINE [Concomitant]
     Active Substance: PREDNISOLONE
     Indication: Microscopic polyangiitis
     Dosage: 6 MG
     Route: 065
     Dates: start: 2009, end: 20250121

REACTIONS (5)
  - Drug-induced liver injury [Not Recovered/Not Resolved]
  - Hypophagia [Unknown]
  - Anorexia nervosa [Unknown]
  - Vomiting [Unknown]
  - Underdose [Unknown]

NARRATIVE: CASE EVENT DATE: 20241125
